FAERS Safety Report 7379138-5 (Version None)
Quarter: 2011Q1

REPORT INFORMATION
  Report Type: 
  Country: None (occurrence: None)
  Receive Date: 20110328
  Receipt Date: 20110314
  Transmission Date: 20110831
  Serious: Yes (Hospitalization)
  Sender: FDA-Public Use
  Company Number: PHHY2011IT21002

PATIENT
  Sex: Male

DRUGS (8)
  1. ANTICOAGULANTS [Concomitant]
  2. LESCOL [Concomitant]
     Dosage: 20 MG, UNK
     Route: 048
     Dates: start: 20051220
  3. LANSOX [Concomitant]
     Dosage: 30 MG, UNK
     Route: 048
     Dates: start: 20080116
  4. SANDIMMUNE [Concomitant]
     Dosage: 75 MG, UNK
     Route: 048
     Dates: start: 20051130
  5. ASPIRIN [Concomitant]
     Dosage: 75 MG, UNK
     Route: 048
     Dates: start: 20071029
  6. CERTICAN [Suspect]
     Indication: PROPHYLAXIS AGAINST TRANSPLANT REJECTION
     Dosage: 1.5 MG, UNK
     Dates: start: 20071018
  7. LASIX [Concomitant]
     Dosage: 25 MG, UNK
     Route: 048
     Dates: start: 20051221
  8. CONGESCOR [Concomitant]
     Dosage: 2.5 MG, UNK
     Route: 048
     Dates: start: 20060421

REACTIONS (2)
  - DEEP VEIN THROMBOSIS [None]
  - PULMONARY EMBOLISM [None]
